FAERS Safety Report 17731614 (Version 1)
Quarter: 2020Q2

REPORT INFORMATION
  Report Type: Spontaneous
  Country: US (occurrence: US)
  Receive Date: 20200501
  Receipt Date: 20200501
  Transmission Date: 20200714
  Serious: No
  Sender: FDA-Public Use
  Company Number: US-ASTRAZENECA-2020SE56583

PATIENT
  Sex: Female
  Weight: 79.4 kg

DRUGS (2)
  1. FASENRA [Suspect]
     Active Substance: BENRALIZUMAB
     Indication: EOSINOPHIL COUNT INCREASED
     Dosage: Q MONTH FOR FIRST 3, THEN EVERY OTHER MONTH
     Route: 058
     Dates: start: 202001
  2. REESES [Concomitant]
     Indication: HELMINTHIC INFECTION
     Dosage: 1.0OZ ONCE/SINGLE ADMINISTRATION
     Route: 048

REACTIONS (3)
  - Weight increased [Unknown]
  - Enterobiasis [Recovering/Resolving]
  - Injection site pain [Recovered/Resolved]
